FAERS Safety Report 8875849 (Version 1)
Quarter: 2012Q4

REPORT INFORMATION
  Report Type: 
  Country: DE (occurrence: DE)
  Receive Date: 20121030
  Receipt Date: 20121030
  Transmission Date: 20130627
  Serious: Yes (Other)
  Sender: FDA-Public Use
  Company Number: DE-GLAXOSMITHKLINE-D0077519A

PATIENT
  Age: 83 Year
  Sex: Male

DRUGS (1)
  1. CEFUHEXAL [Suspect]
     Indication: BRONCHITIS
     Dosage: 500MG Per day
     Route: 048

REACTIONS (3)
  - Parkinson^s disease [Unknown]
  - Mobility decreased [Unknown]
  - Restlessness [Unknown]
